FAERS Safety Report 8657939 (Version 7)
Quarter: 2012Q4

REPORT INFORMATION
  Report Type: 
  Country: JP (occurrence: JP)
  Receive Date: 20120710
  Receipt Date: 20121016
  Transmission Date: 20130627
  Serious: Yes (Other)
  Sender: FDA-Public Use
  Company Number: PHHY2012JP058483

PATIENT
  Age: 98 Year
  Sex: Female

DRUGS (9)
  1. EXELON PATCH [Suspect]
     Indication: DEMENTIA ALZHEIMER^S TYPE
     Dosage: 4.5 mg, daily
     Route: 062
     Dates: start: 20120114, end: 20120129
  2. EXELON PATCH [Suspect]
     Dosage: 9 mg, daily
     Route: 062
     Dates: start: 20120130, end: 20120223
  3. EXELON PATCH [Suspect]
     Dosage: 13.5 mg, daily
     Route: 062
     Dates: start: 20120224, end: 20120320
  4. EXELON PATCH [Suspect]
     Dosage: 18 mg, daily
     Route: 062
     Dates: start: 20120321, end: 20120511
  5. TEGRETOL [Suspect]
     Indication: RESTLESSNESS
     Dosage: 100 mg, daily
     Route: 048
     Dates: start: 20120321, end: 20120417
  6. TEGRETOL [Suspect]
     Dosage: 200 mg, daily
     Route: 048
     Dates: start: 20120418, end: 20120528
  7. CALCIUM ANTAGONISTS [Concomitant]
  8. YOKUKAN-SAN [Concomitant]
     Dosage: 3 DF, daily
     Route: 048
  9. ATELEC [Concomitant]
     Indication: HYPERTENSION
     Dosage: 10 mg, UNK
     Route: 048
     Dates: start: 20120210, end: 20120720

REACTIONS (18)
  - Toxic epidermal necrolysis [Recovered/Resolved]
  - Skin oedema [Recovering/Resolving]
  - Pyrexia [Unknown]
  - Pruritus [Unknown]
  - Rash [Unknown]
  - Papule [Recovering/Resolving]
  - Oedema peripheral [Recovering/Resolving]
  - Skin discolouration [Recovering/Resolving]
  - Cyanosis [Recovering/Resolving]
  - Blood pressure increased [Recovered/Resolved]
  - Drug eruption [Recovering/Resolving]
  - Generalised erythema [Recovering/Resolving]
  - Peripheral coldness [Unknown]
  - Blood glucose increased [Recovered/Resolved]
  - Agitation [Unknown]
  - Diarrhoea [Unknown]
  - Restlessness [Recovered/Resolved]
  - Application site rash [Unknown]
